FAERS Safety Report 7118133-8 (Version None)
Quarter: 2010Q4

REPORT INFORMATION
  Report Type: 
  Country: None (occurrence: None)
  Receive Date: 20101123
  Receipt Date: 20101116
  Transmission Date: 20110411
  Serious: Yes (Other)
  Sender: FDA-Public Use
  Company Number: US-PFIZER INC-2010132008

PATIENT
  Sex: Female
  Weight: 77.098 kg

DRUGS (4)
  1. ZOLOFT [Suspect]
     Indication: DEPRESSION
     Dosage: UNK
  2. ZOLOFT [Suspect]
     Indication: SUICIDAL IDEATION
  3. EFFEXOR XR [Suspect]
     Indication: DEPRESSION
     Dosage: UNK
  4. EFFEXOR XR [Suspect]
     Indication: SUICIDAL IDEATION

REACTIONS (8)
  - ASTHENIA [None]
  - DEPRESSION [None]
  - MENSTRUATION IRREGULAR [None]
  - MUSCLE SPASMS [None]
  - PHOTOPHOBIA [None]
  - SINUS HEADACHE [None]
  - SUICIDAL IDEATION [None]
  - VISUAL IMPAIRMENT [None]
